FAERS Safety Report 8804003 (Version 1)
Quarter: 2012Q4

REPORT INFORMATION
  Report Type: 
  Country: US (occurrence: US)
  Receive Date: 20120924
  Receipt Date: 20120924
  Transmission Date: 20130627
  Serious: No
  Sender: FDA-Public Use
  Company Number: US-PFIZER INC-2012232222

PATIENT
  Sex: Male

DRUGS (2)
  1. PROTONIX [Suspect]
  2. PANTOPRAZOLE [Suspect]

REACTIONS (4)
  - Urinary hesitation [Unknown]
  - Chromaturia [Unknown]
  - Depression [Unknown]
  - Diarrhoea [Unknown]
